FAERS Safety Report 15853579 (Version 1)
Quarter: 2019Q1

REPORT INFORMATION
  Report Type: Spontaneous
  Country: US (occurrence: PL)
  Receive Date: 20190122
  Receipt Date: 20190122
  Transmission Date: 20190417
  Serious: Yes (Other)
  Sender: FDA-Public Use
  Company Number: US-SUNOVION-2019SUN000236

PATIENT

DRUGS (1)
  1. INDACATEROL AND GLYCOPYRROLATE [Suspect]
     Active Substance: GLYCOPYRROLATE\INDACATEROL MALEATE
     Indication: PRODUCT USED FOR UNKNOWN INDICATION
     Route: 065

REACTIONS (1)
  - Arrhythmia [Recovered/Resolved]
